FAERS Safety Report 5786204-4 (Version None)
Quarter: 2008Q2

REPORT INFORMATION
  Report Type: 
  Country: None (occurrence: None)
  Receive Date: 20080624
  Receipt Date: 20070806
  Transmission Date: 20081010
  Serious: No
  Sender: FDA-Public Use
  Company Number: US-ASTRAZENECA-2007UW19003

PATIENT
  Age: 78 Year
  Sex: Male
  Weight: 74.4 kg

DRUGS (8)
  1. PULMICORT RESPULES [Suspect]
     Indication: EMPHYSEMA
     Route: 055
     Dates: start: 20050101, end: 20070701
  2. PULMICORT RESPULES [Suspect]
     Route: 055
     Dates: start: 20070701
  3. ALBUTEROL [Suspect]
  4. COMBIVENT [Concomitant]
  5. DUONEB [Concomitant]
     Dosage: 1/2
  6. ASPIRIN [Concomitant]
  7. MULTI-VITAMIN [Concomitant]
  8. TRAZODONE HCL [Concomitant]

REACTIONS (3)
  - ANXIETY [None]
  - NERVOUSNESS [None]
  - TREMOR [None]
